FAERS Safety Report 4417513-9 (Version None)
Quarter: 2004Q3

REPORT INFORMATION
  Report Type: 
  Country: None (occurrence: None)
  Receive Date: 20040804
  Receipt Date: 20040716
  Transmission Date: 20050211
  Serious: Yes (Other)
  Sender: FDA-Public Use
  Company Number: 2004048355

PATIENT
  Age: 49 Year
  Sex: Male
  Weight: 97.5234 kg

DRUGS (2)
  1. NATURAL CITRUS LISTERINE (EUCALYPTOL, MENTHOL, METHYL SALICYLATE, THYM [Suspect]
     Dosage: QOD, ORAL
     Route: 048
     Dates: end: 20040714
  2. HYDROCHLOROTHIAZIDE [Concomitant]

REACTIONS (3)
  - FACE OEDEMA [None]
  - SWELLING FACE [None]
  - URTICARIA [None]
